FAERS Safety Report 6500961-0 (Version None)
Quarter: 2009Q4

REPORT INFORMATION
  Report Type: 
  Country: None (occurrence: None)
  Receive Date: 20091216
  Receipt Date: 20090511
  Transmission Date: 20100525
  Serious: No
  Sender: FDA-Public Use
  Company Number: A0782508A

PATIENT
  Age: 52 Year
  Sex: Female

DRUGS (1)
  1. NICOTINE POLACRILEX [Suspect]
     Indication: SMOKING CESSATION THERAPY
     Dates: start: 20080201

REACTIONS (8)
  - ENDODONTIC PROCEDURE [None]
  - FEELING ABNORMAL [None]
  - INTENTIONAL DRUG MISUSE [None]
  - MOUTH INJURY [None]
  - NERVOUSNESS [None]
  - NICOTINE DEPENDENCE [None]
  - TREMOR [None]
  - WITHDRAWAL SYNDROME [None]
